FAERS Safety Report 17761006 (Version 1)
Quarter: 2020Q2

REPORT INFORMATION
  Report Type: Spontaneous
  Country: US (occurrence: US)
  Receive Date: 20200508
  Receipt Date: 20200508
  Transmission Date: 20200714
  Serious: No
  Sender: FDA-Public Use
  Company Number: US-PFIZER INC-2020184845

PATIENT
  Age: 71 Year
  Sex: Female

DRUGS (13)
  1. GABAPENTINE [Concomitant]
     Active Substance: GABAPENTIN
     Dosage: 300 MG
  2. XIFAXAN [Concomitant]
     Active Substance: RIFAXIMIN
     Dosage: 200 MG
  3. CALCIUM + D3 [CALCIUM;COLECALCIFEROL] [Concomitant]
     Dosage: UNK
  4. HYDROMORPHONE [Concomitant]
     Active Substance: HYDROMORPHONE
     Dosage: UNK
  5. IRON [Concomitant]
     Active Substance: IRON
     Dosage: UNK, [159(45)MG ]
  6. IBRANCE [Suspect]
     Active Substance: PALBOCICLIB
     Indication: BREAST CANCER METASTATIC
     Dosage: 100 MG, DAILY FOR 21 DAYS
     Route: 048
     Dates: start: 20200422
  7. EXEMESTANE. [Concomitant]
     Active Substance: EXEMESTANE
     Dosage: 25 MG
  8. SPIRONOLACTONE. [Concomitant]
     Active Substance: SPIRONOLACTONE
     Dosage: 100 MG
  9. B-50 COMPLEX [VITAMIN B COMPLEX] [Concomitant]
     Dosage: UNK
  10. XARELTO [Concomitant]
     Active Substance: RIVAROXABAN
     Dosage: 10 MG
  11. PROPRANOL HCL [Concomitant]
     Dosage: 10 MG
  12. MAGNESIUM OXIDE. [Concomitant]
     Active Substance: MAGNESIUM OXIDE
     Dosage: 250 MG
  13. ACT FLUCONAZOLE [Concomitant]
     Active Substance: FLUCONAZOLE

REACTIONS (2)
  - Accidental overdose [Unknown]
  - Platelet count decreased [Unknown]
